FAERS Safety Report 19936051 (Version 4)
Quarter: 2021Q4

REPORT INFORMATION
  Report Type: Report from Study
  Country: BR (occurrence: BR)
  Receive Date: 20211008
  Receipt Date: 20211126
  Transmission Date: 20220304
  Serious: Yes (Other)
  Sender: FDA-Public Use
  Company Number: BR-TAKEDA-2021TUS054908

PATIENT
  Age: 3 Year
  Sex: Male
  Weight: 18.5 kg

DRUGS (2)
  1. IDURSULFASE [Suspect]
     Active Substance: IDURSULFASE
     Indication: Mucopolysaccharidosis II
     Dosage: 2 DOSAGE FORM, 1/WEEK
     Route: 042
     Dates: start: 20210727
  2. IDURSULFASE [Suspect]
     Active Substance: IDURSULFASE
     Dosage: 1.5 DOSAGE FORM, 1/WEEK
     Route: 042
     Dates: start: 202107

REACTIONS (6)
  - Autism spectrum disorder [Unknown]
  - Fatigue [Unknown]
  - Malaise [Unknown]
  - Adverse reaction [Unknown]
  - Therapy interrupted [Unknown]
  - Product availability issue [Unknown]

NARRATIVE: CASE EVENT DATE: 20210824
